FAERS Safety Report 10921166 (Version 2)
Quarter: 2015Q2

REPORT INFORMATION
  Report Type: Spontaneous
  Country: GB (occurrence: GB)
  Receive Date: 20150317
  Receipt Date: 20150414
  Transmission Date: 20150821
  Serious: Yes (Hospitalization, Other)
  Sender: FDA-Public Use
  Company Number: GB-ABBVIE-15K-167-1359813-00

PATIENT
  Age: 44 Year
  Sex: Female

DRUGS (2)
  1. SIMPONI [Suspect]
     Active Substance: GOLIMUMAB
     Indication: CROHN^S DISEASE
     Route: 058
     Dates: start: 201312, end: 201405
  2. HUMIRA [Suspect]
     Active Substance: ADALIMUMAB
     Indication: CROHN^S DISEASE
     Route: 058
     Dates: start: 201003, end: 201003

REACTIONS (6)
  - Depression [Recovered/Resolved with Sequelae]
  - Sinusitis [Recovered/Resolved]
  - Breast calcifications [Recovered/Resolved]
  - Urinary tract infection [Recovered/Resolved]
  - Raynaud^s phenomenon [Unknown]
  - Lymphoedema [Recovered/Resolved]

NARRATIVE: CASE EVENT DATE: 201003
